FAERS Safety Report 9116106 (Version 1)
Quarter: 2013Q1

REPORT INFORMATION
  Report Type: Spontaneous
  Country: BR (occurrence: BR)
  Receive Date: 20130225
  Receipt Date: 20130225
  Transmission Date: 20140127
  Serious: Yes (Hospitalization, Other)
  Sender: FDA-Public Use
  Company Number: BR-PFIZER INC-2013069101

PATIENT
  Age: 31 Year
  Sex: Female
  Weight: 80 kg

DRUGS (5)
  1. LYRICA [Suspect]
     Indication: PAIN
     Dosage: UNK
     Route: 048
     Dates: start: 201209
  2. TRAMAL [Concomitant]
     Indication: TENDONITIS
     Dosage: 4X PER DAY
  3. TRAMAL [Concomitant]
     Indication: ARTHRALGIA
  4. FLAVONID [Concomitant]
     Indication: THROMBOSIS
     Dosage: TWICE DAILY (CONTINUOUS USE)
  5. XARELTO [Concomitant]
     Indication: THROMBOSIS
     Dosage: UNK

REACTIONS (3)
  - Spinal disorder [Unknown]
  - Post procedural infection [Unknown]
  - Thrombosis [Unknown]
